FAERS Safety Report 5293413-X (Version None)
Quarter: 2007Q2

REPORT INFORMATION
  Report Type: 
  Country: None (occurrence: None)
  Receive Date: 20070411
  Receipt Date: 20070406
  Transmission Date: 20071010
  Serious: Yes (Other)
  Sender: FDA-Public Use
  Company Number: 2007UW06907

PATIENT
  Age: 78 Year
  Sex: Male
  Weight: 77.1 kg

DRUGS (8)
  1. SEROQUEL [Suspect]
     Indication: ANXIETY
     Route: 048
  2. EXELON [Concomitant]
  3. DIGOXIN [Concomitant]
  4. WELLBUTRIN [Concomitant]
  5. AVODART [Concomitant]
  6. FLOMAX [Concomitant]
  7. XANAX [Concomitant]
  8. AMARYL [Concomitant]

REACTIONS (5)
  - BLOOD GLUCOSE INCREASED [None]
  - CARDIAC FAILURE [None]
  - CARDIOMEGALY [None]
  - HEART RATE DECREASED [None]
  - LUNG INFECTION [None]
